FAERS Safety Report 7501467-2 (Version None)
Quarter: 2011Q2

REPORT INFORMATION
  Report Type: 
  Country: None (occurrence: None)
  Receive Date: 20110524
  Receipt Date: 20091031
  Transmission Date: 20111010
  Serious: Yes (Hospitalization, Other)
  Sender: FDA-Public Use
  Company Number: US-BAYER-200938378NA

PATIENT
  Age: 62 Year
  Sex: Male
  Weight: 84 kg

DRUGS (18)
  1. REGULAR INSULIN [Concomitant]
     Indication: DIABETES MELLITUS
     Dosage: SLIDING SCALE
     Route: 058
     Dates: start: 20031213
  2. AMIODARONE HCL [Concomitant]
     Indication: VENTRICULAR FIBRILLATION
     Dosage: VARYING DOSE
     Route: 042
     Dates: start: 20031213
  3. HEPARIN [Concomitant]
     Dosage: 20000 UNITS
     Route: 042
     Dates: start: 20031217
  4. LIPITOR [Concomitant]
     Indication: HYPERLIPIDAEMIA
     Dosage: 40 MG PER DAY
     Route: 048
     Dates: start: 20031213
  5. LASIX [Concomitant]
     Indication: PULMONARY CONGESTION
     Dosage: VARYING DOSES
     Route: 042
     Dates: start: 20031213
  6. LOVENOX [Concomitant]
     Indication: MYOCARDIAL INFARCTION
     Dosage: UNK
     Route: 042
     Dates: start: 20031213
  7. PROTAMINE SULFATE [Concomitant]
     Dosage: 270 MG
     Dates: start: 20031217, end: 20031217
  8. TRASYLOL [Suspect]
     Indication: VASCULAR GRAFT
     Dosage: INITIAL (TEST) DOSE OF 1 ML
     Route: 042
     Dates: start: 20031217, end: 20031217
  9. ACETYLSALICYLIC ACID SRT [Concomitant]
     Indication: MYOCARDIAL INFARCTION
     Dosage: UNK
     Route: 048
     Dates: start: 20031213
  10. HEPARIN [Concomitant]
     Dosage: 28000 UNITS
     Route: 042
     Dates: start: 20031217
  11. RED BLOOD CELLS [Concomitant]
     Dosage: 4 UNITS
     Dates: start: 20031217
  12. HEPARIN [Concomitant]
     Dosage: VARYING DOSE
     Route: 042
     Dates: start: 20031213
  13. HEPARIN [Concomitant]
     Dosage: 12000 UNITS
     Route: 042
     Dates: start: 20031217
  14. NITROGLYCERIN [Concomitant]
     Indication: ATRIAL FIBRILLATION
     Dosage: VARYING DOSE
     Route: 042
     Dates: start: 20031213
  15. AMIODARONE HCL [Concomitant]
     Indication: VENTRICULAR TACHYCARDIA
  16. TRASYLOL [Suspect]
     Indication: MITRAL VALVE REPAIR
     Dosage: LOADING DOSE OF 200 THEN 50 ML/HOUR
     Dates: start: 20031217, end: 20031217
  17. BISOPROLOL FUMARATE [Concomitant]
     Indication: HYPERTENSION
     Dosage: 5 MG
     Route: 048
     Dates: start: 20031213
  18. HEPARIN [Concomitant]
     Dosage: 5000 UNITS
     Route: 042
     Dates: start: 20031217

REACTIONS (10)
  - INJURY [None]
  - FEAR [None]
  - RENAL FAILURE [None]
  - EMOTIONAL DISORDER [None]
  - RENAL IMPAIRMENT [None]
  - RENAL INJURY [None]
  - STRESS [None]
  - ANXIETY [None]
  - PAIN [None]
  - UNEVALUABLE EVENT [None]
